FAERS Safety Report 9638466 (Version 3)
Quarter: 2013Q4

REPORT INFORMATION
  Report Type: Spontaneous
  Country: JP (occurrence: JP)
  Receive Date: 20131022
  Receipt Date: 20131203
  Transmission Date: 20140711
  Serious: Yes (Other)
  Sender: FDA-Public Use
  Company Number: JP-PFIZER INC-2013299517

PATIENT
  Age: 77 Year
  Sex: Female

DRUGS (7)
  1. XALATAN [Suspect]
     Indication: INTRAOCULAR PRESSURE INCREASED
     Dosage: 1 GTT, 1X/DAY
     Route: 047
     Dates: start: 200802
  2. XALATAN [Suspect]
     Dosage: UNK
     Route: 047
  3. BUNAZOSIN HYDROCHLORIDE [Suspect]
     Indication: INTRAOCULAR PRESSURE INCREASED
     Dosage: UNK
     Route: 047
     Dates: start: 200802
  4. FLUOROMETHOLONE [Suspect]
     Indication: INTRAOCULAR PRESSURE INCREASED
     Dosage: UNK
     Route: 047
     Dates: start: 200802
  5. TIMOLOL MALEATE [Concomitant]
     Dosage: UNK
     Route: 047
     Dates: start: 200704
  6. BRINZOLAMIDE [Concomitant]
     Dosage: UNK
     Route: 047
     Dates: start: 200704
  7. LEVOFLOXACIN [Concomitant]
     Dosage: 6X/DAY
     Route: 047
     Dates: start: 200704

REACTIONS (1)
  - Corneal disorder [Recovered/Resolved]
